FAERS Safety Report 21859055 (Version 6)
Quarter: 2023Q2

REPORT INFORMATION
  Report Type: Report from Study
  Country: ES (occurrence: ES)
  Receive Date: 20230113
  Receipt Date: 20230509
  Transmission Date: 20230722
  Serious: Yes (Hospitalization)
  Sender: FDA-Public Use
  Company Number: ES-002147023-NVSC2023ES006455

PATIENT
  Age: 66 Year
  Sex: Male
  Weight: 101 kg

DRUGS (33)
  1. INVESTIGATIONAL PRODUCT [Suspect]
     Active Substance: INVESTIGATIONAL PRODUCT
     Indication: Plasma cell myeloma refractory
     Dosage: 5 X 10E6 CELLS
     Route: 042
     Dates: start: 20221227
  2. POLARAMINE [Concomitant]
     Active Substance: DEXCHLORPHENIRAMINE MALEATE
     Indication: Premedication
     Dosage: UNK
     Route: 065
     Dates: start: 20221227, end: 20221227
  3. TOCILIZUMAB [Concomitant]
     Active Substance: TOCILIZUMAB
     Indication: Cytokine release syndrome
     Dosage: UNK
     Route: 065
     Dates: start: 20230103, end: 20230103
  4. TOCILIZUMAB [Concomitant]
     Active Substance: TOCILIZUMAB
     Dosage: UNK
     Route: 065
     Dates: start: 20230104, end: 20230104
  5. DOXICICLIN [Concomitant]
     Indication: General physical condition
     Dosage: UNK
     Route: 065
     Dates: start: 20221229, end: 20230111
  6. KONAKION [Concomitant]
     Active Substance: PHYTONADIONE
     Indication: General physical condition
     Dosage: UNK
     Route: 065
     Dates: start: 20221231, end: 20230105
  7. FLUCONAZOLE [Concomitant]
     Active Substance: FLUCONAZOLE
     Indication: General physical condition
     Dosage: UNK
     Route: 065
     Dates: start: 20230101, end: 20230111
  8. HIBOR [Concomitant]
     Indication: Antithrombin III deficiency
     Dosage: UNK
     Route: 065
     Dates: start: 20221226, end: 20221229
  9. ISOSORBIDE MONONITRATE [Concomitant]
     Active Substance: ISOSORBIDE MONONITRATE
     Indication: General physical condition
     Dosage: UNK
     Route: 065
     Dates: start: 20221227, end: 20230111
  10. LEVOFLOXACIN [Concomitant]
     Active Substance: LEVOFLOXACIN
     Indication: General physical condition
     Dosage: UNK
     Route: 065
     Dates: start: 20230101, end: 20230102
  11. METHADONE [Concomitant]
     Active Substance: METHADONE HYDROCHLORIDE
     Indication: General physical condition
     Dosage: UNK
     Route: 065
     Dates: start: 20221226, end: 20230111
  12. METHADONE [Concomitant]
     Active Substance: METHADONE HYDROCHLORIDE
     Indication: Analgesic therapy
  13. NOLOTIL [Concomitant]
     Indication: Cytokine release syndrome
     Dosage: UNK
     Route: 065
     Dates: start: 20230103, end: 20230103
  14. ACETAMINOPHEN [Concomitant]
     Active Substance: ACETAMINOPHEN
     Indication: Cytokine release syndrome
     Dosage: UNK
     Route: 065
     Dates: start: 20221227, end: 20221227
  15. ACETAMINOPHEN [Concomitant]
     Active Substance: ACETAMINOPHEN
     Indication: Premedication
     Dosage: UNK
     Route: 065
     Dates: start: 20230102, end: 20230104
  16. CEFEPIME [Concomitant]
     Active Substance: CEFEPIME HYDROCHLORIDE
     Indication: Cytokine release syndrome
     Dosage: UNK
     Route: 065
     Dates: start: 20230102, end: 20230109
  17. PENTAMIDINE [Concomitant]
     Active Substance: PENTAMIDINE
     Indication: General physical condition
     Dosage: UNK
     Route: 065
     Dates: start: 20221226, end: 20221226
  18. PUNTUAL [Concomitant]
     Indication: Constipation
     Dosage: UNK
     Route: 065
     Dates: start: 20221230, end: 20230111
  19. SIMETHICONE (DIMETHICONE) [Concomitant]
     Active Substance: DIMETHICONE
     Indication: General physical condition
     Dosage: UNK
     Route: 065
     Dates: start: 20221231, end: 20230111
  20. ZOPICLONE [Concomitant]
     Active Substance: ZOPICLONE
     Indication: General physical condition
     Dosage: UNK
     Route: 065
     Dates: start: 20221230, end: 20230110
  21. METFORMIN HYDROCHLORIDE [Concomitant]
     Active Substance: METFORMIN HYDROCHLORIDE
     Indication: Diabetes mellitus
     Dosage: UNK
     Route: 065
     Dates: start: 20230111
  22. DAPAGLIFLOZIN [Concomitant]
     Active Substance: DAPAGLIFLOZIN
     Indication: Diabetes mellitus
     Dosage: UNK
     Route: 065
     Dates: start: 2016
  23. FILGRASTIM [Concomitant]
     Active Substance: FILGRASTIM
     Indication: Neutropenia
     Dosage: UNK
     Route: 065
     Dates: start: 20230110, end: 20230111
  24. CAPTOPRIL [Concomitant]
     Active Substance: CAPTOPRIL
     Indication: Prinzmetal angina
     Dosage: UNK
     Route: 065
     Dates: start: 20230107, end: 20230108
  25. CASENLAX [Concomitant]
     Indication: Constipation
     Dosage: UNK
     Route: 065
     Dates: start: 20221229, end: 20230111
  26. INSULIN NOS [Concomitant]
     Active Substance: INSULIN NOS
     Indication: Product used for unknown indication
     Dosage: UNK
     Route: 065
  27. ATORVASTATIN [Concomitant]
     Active Substance: ATORVASTATIN
     Indication: Blood cholesterol
     Dosage: UNK
     Route: 065
  28. DULCOLAX NOS [Concomitant]
     Active Substance: BISACODYL OR DOCUSATE SODIUM
     Indication: Constipation prophylaxis
     Dosage: UNK
     Route: 065
  29. LYRICA [Concomitant]
     Active Substance: PREGABALIN
     Indication: Pain prophylaxis
     Dosage: UNK
     Route: 065
  30. NITROLINGUAL [Concomitant]
     Active Substance: NITROGLYCERIN
     Indication: Prinzmetal angina
     Dosage: UNK
     Route: 065
  31. PANTOPRAZOLE SODIUM [Concomitant]
     Active Substance: PANTOPRAZOLE SODIUM
     Indication: Gastritis prophylaxis
     Dosage: UNK
     Route: 065
  32. TETRACYCLINE [Concomitant]
     Active Substance: TETRACYCLINE
     Indication: Antibiotic prophylaxis
     Dosage: UNK
     Route: 065
  33. VALTREX [Concomitant]
     Active Substance: VALACYCLOVIR HYDROCHLORIDE
     Indication: Antiviral prophylaxis
     Dosage: UNK
     Route: 065

REACTIONS (1)
  - Diabetic metabolic decompensation [Recovered/Resolved]

NARRATIVE: CASE EVENT DATE: 20230110
